FAERS Safety Report 19326178 (Version 3)
Quarter: 2021Q2

REPORT INFORMATION
  Report Type: Report from Study
  Country: US (occurrence: US)
  Receive Date: 20210528
  Receipt Date: 20210611
  Transmission Date: 20210717
  Serious: Yes (Hospitalization, Other)
  Sender: FDA-Public Use
  Company Number: US-TAKEDA-US202033828

PATIENT
  Age: 12 Year
  Sex: Female
  Weight: 20.86 kg

DRUGS (18)
  1. TEDUGLUTIDE [Suspect]
     Active Substance: TEDUGLUTIDE
     Indication: SHORT-BOWEL SYNDROME
     Dosage: 10 MILLIGRAM (7 DOSES PER WEEK), OTHER
     Route: 065
     Dates: start: 20190912
  2. TEDUGLUTIDE [Suspect]
     Active Substance: TEDUGLUTIDE
     Indication: SHORT-BOWEL SYNDROME
     Dosage: 10 MILLIGRAM (7 DOSES PER WEEK), OTHER
     Route: 065
     Dates: start: 20190912
  3. TEDUGLUTIDE [Suspect]
     Active Substance: TEDUGLUTIDE
     Indication: SHORT-BOWEL SYNDROME
     Dosage: 10 MILLIGRAM (7 DOSES PER WEEK), OTHER
     Route: 065
     Dates: start: 20190912
  4. ZOSYN [Concomitant]
     Active Substance: PIPERACILLIN SODIUM\TAZOBACTAM SODIUM
     Indication: ABDOMINAL INFECTION
     Route: 042
  5. NYSTATIN. [Concomitant]
     Active Substance: NYSTATIN
     Dosage: UNK UNK, PRN
     Route: 061
  6. SULFATRIM PEDIATRIC [Concomitant]
     Indication: GASTROINTESTINAL DISORDER
     Dosage: 200 MILLIGRAM, BID
     Route: 050
     Dates: start: 20190731
  7. LOVENOX [Concomitant]
     Active Substance: ENOXAPARIN SODIUM
     Indication: PRODUCT USED FOR UNKNOWN INDICATION
     Dosage: 40 MILLIGRAM, QD
     Route: 058
     Dates: start: 2020
  8. TEDUGLUTIDE [Suspect]
     Active Substance: TEDUGLUTIDE
     Dosage: 10 MILLIGRAM PER MILLILITRE, QD
     Route: 058
     Dates: start: 20190712
  9. VANCOMYCIN [Concomitant]
     Active Substance: VANCOMYCIN
     Dosage: UNK
     Route: 061
     Dates: start: 20210119
  10. MELATONIN [Concomitant]
     Active Substance: MELATONIN
     Indication: PRODUCT USED FOR UNKNOWN INDICATION
     Dosage: 5 MILLIGRAM, BEDTIME
     Route: 048
     Dates: start: 20210323, end: 20210326
  11. TEDUGLUTIDE [Suspect]
     Active Substance: TEDUGLUTIDE
     Indication: SHORT-BOWEL SYNDROME
     Dosage: 10 MILLIGRAM (7 DOSES PER WEEK), OTHER
     Route: 065
     Dates: start: 20190912
  12. TEDUGLUTIDE [Suspect]
     Active Substance: TEDUGLUTIDE
     Dosage: 10 MILLIGRAM PER MILLILITRE, QD
     Route: 058
     Dates: start: 20190712
  13. CLARITIN [Concomitant]
     Active Substance: LORATADINE
     Dosage: UNK UNK, QD,PRN
     Route: 065
  14. TEDUGLUTIDE [Suspect]
     Active Substance: TEDUGLUTIDE
     Dosage: 10 MILLIGRAM PER MILLILITRE, QD
     Route: 058
     Dates: start: 20190712
  15. TEDUGLUTIDE [Suspect]
     Active Substance: TEDUGLUTIDE
     Dosage: 10 MILLIGRAM PER MILLILITRE, QD
     Route: 058
     Dates: start: 20190712
  16. ZOSYN [Concomitant]
     Active Substance: PIPERACILLIN SODIUM\TAZOBACTAM SODIUM
     Indication: DEVICE RELATED INFECTION
  17. VANCOMYCIN [Concomitant]
     Active Substance: VANCOMYCIN
     Indication: DEVICE RELATED INFECTION
     Dosage: UNK
     Route: 042
  18. RIFAXIMIN. [Concomitant]
     Active Substance: RIFAXIMIN
     Indication: PRODUCT USED FOR UNKNOWN INDICATION
     Dosage: 200 MILLIGRAM, BID
     Route: 048

REACTIONS (3)
  - Vascular device infection [Recovered/Resolved]
  - Rhinovirus infection [Recovered/Resolved]
  - Staphylococcal bacteraemia [Recovered/Resolved]

NARRATIVE: CASE EVENT DATE: 20200713
